FAERS Safety Report 8382049-X (Version None)
Quarter: 2012Q2

REPORT INFORMATION
  Report Type: 
  Country: None (occurrence: None)
  Receive Date: 20120524
  Receipt Date: 20120518
  Transmission Date: 20120825
  Serious: Yes (Hospitalization)
  Sender: FDA-Public Use
  Company Number: PL-AMGEN-POLSP2012031246

PATIENT
  Age: 27 Year
  Sex: Female
  Weight: 65 kg

DRUGS (5)
  1. TRASTUZUMAB [Concomitant]
     Indication: BREAST CANCER
     Dosage: UNK
     Dates: start: 20120228
  2. NEUPOGEN [Suspect]
     Indication: CHEMOTHERAPY
     Dosage: 48000000 UNIT, UNK
     Route: 058
     Dates: start: 20120229
  3. FLUOROURACIL [Concomitant]
     Indication: BREAST CANCER
     Dosage: 500 MG/M2, UNK
     Dates: start: 20120228
  4. CYTOXAN [Concomitant]
     Indication: BREAST CANCER
     Dosage: 500 MG/M2, UNK
     Dates: start: 20120228
  5. EPIRUBICIN [Concomitant]
     Indication: BREAST CANCER
     Dosage: 100 MG/M2, UNK
     Dates: start: 20120228

REACTIONS (4)
  - FEBRILE NEUTROPENIA [None]
  - UPPER RESPIRATORY TRACT INFECTION [None]
  - DYSURIA [None]
  - DRUG INEFFECTIVE [None]
